FAERS Safety Report 14928459 (Version 1)
Quarter: 2018Q2

REPORT INFORMATION
  Report Type: Spontaneous
  Country: US (occurrence: US)
  Receive Date: 20180523
  Receipt Date: 20180523
  Transmission Date: 20180711
  Serious: No
  Sender: FDA-Public Use
  Company Number: US-FDC LIMITED-2018RIS00083

PATIENT
  Sex: Female
  Weight: 72.56 kg

DRUGS (3)
  1. TIMOLOL MALEATE. [Suspect]
     Active Substance: TIMOLOL MALEATE
     Dosage: 1 DROP IN EACH EYE, 2X/DAY
     Route: 047
     Dates: start: 20180206
  2. TIMOLOL MALEATE. [Suspect]
     Active Substance: TIMOLOL MALEATE
     Indication: GLAUCOMA
     Dosage: 1 DROP IN EACH EYE, 2X/DAY
     Route: 047
     Dates: start: 201703, end: 201801
  3. LATANOPROST. [Concomitant]
     Active Substance: LATANOPROST

REACTIONS (4)
  - Administration site pain [Not Recovered/Not Resolved]
  - Alopecia [Not Recovered/Not Resolved]
  - Eye swelling [Not Recovered/Not Resolved]
  - Eyelid margin crusting [Not Recovered/Not Resolved]

NARRATIVE: CASE EVENT DATE: 201703
